FAERS Safety Report 25120616 (Version 1)
Quarter: 2025Q1

REPORT INFORMATION
  Report Type: Spontaneous
  Country: TW (occurrence: TW)
  Receive Date: 20250325
  Receipt Date: 20250325
  Transmission Date: 20250409
  Serious: Yes (Other)
  Sender: NOVARTIS
  Company Number: TW-002147023-NVSC2025TW047154

PATIENT
  Sex: Male

DRUGS (3)
  1. IMATINIB [Suspect]
     Active Substance: IMATINIB
     Indication: Chronic myeloid leukaemia
     Dosage: UNK (400-600 MG/D)
     Route: 065
  2. NILOTINIB [Suspect]
     Active Substance: NILOTINIB
     Indication: Drug ineffective
     Dosage: 600 MG, QD
     Route: 065
  3. ASCIMINIB [Suspect]
     Active Substance: ASCIMINIB
     Indication: Pleural effusion
     Dosage: 400 MG, BID
     Route: 065

REACTIONS (4)
  - Pleural effusion [Unknown]
  - Drug ineffective [Unknown]
  - Rash [Unknown]
  - Alopecia [Unknown]
